FAERS Safety Report 21825735 (Version 2)
Quarter: 2023Q1

REPORT INFORMATION
  Report Type: Report from Study
  Country: US (occurrence: US)
  Receive Date: 20230105
  Receipt Date: 20230308
  Transmission Date: 20230418
  Serious: No
  Sender: FDA-Public Use
  Company Number: US-ABBVIE-4216952

PATIENT
  Age: 15 Year
  Sex: Male

DRUGS (2)
  1. RINVOQ [Suspect]
     Active Substance: UPADACITINIB
     Indication: Product used for unknown indication
     Route: 048
     Dates: start: 202210
  2. RINVOQ [Suspect]
     Active Substance: UPADACITINIB
     Indication: Product used for unknown indication
     Route: 048

REACTIONS (6)
  - Headache [Unknown]
  - Dizziness [Unknown]
  - Palpitations [Unknown]
  - Vision blurred [Unknown]
  - Drug ineffective [Unknown]
  - Heart rate increased [Unknown]

NARRATIVE: CASE EVENT DATE: 20221220
